FAERS Safety Report 21532744 (Version 1)
Quarter: 2022Q4

REPORT INFORMATION
  Report Type: Spontaneous
  Country: JP (occurrence: JP)
  Receive Date: 20221101
  Receipt Date: 20221101
  Transmission Date: 20230112
  Serious: Yes (Other)
  Sender: FDA-Public Use
  Company Number: JP-SUN PHARMACEUTICAL INDUSTRIES LTD-2022RR-360906

PATIENT
  Age: 65 Year
  Sex: Female

DRUGS (4)
  1. ALLOPURINOL [Interacting]
     Active Substance: ALLOPURINOL
     Indication: Urine uric acid increased
     Dosage: 30 MILLIGRAM, DAILY
     Route: 065
  2. AZATHIOPRINE [Interacting]
     Active Substance: AZATHIOPRINE
     Indication: Urine uric acid increased
     Dosage: 1 MG PER KG BODY WEIGHT
     Route: 065
  3. CEFEPIME [Concomitant]
     Active Substance: CEFEPIME HYDROCHLORIDE
     Indication: Neutropenia
     Dosage: UNK
     Route: 065
  4. CEFEPIME [Concomitant]
     Active Substance: CEFEPIME HYDROCHLORIDE
     Indication: Inflammation

REACTIONS (9)
  - Thrombocytopenia [Unknown]
  - Neutropenia [Unknown]
  - Alopecia [Unknown]
  - Stomatitis [Unknown]
  - Purpura [Unknown]
  - Mouth ulceration [Unknown]
  - Myelosuppression [Unknown]
  - Drug interaction [Unknown]
  - Toxicity to various agents [Unknown]
